FAERS Safety Report 19973780 (Version 1)
Quarter: 2021Q4

REPORT INFORMATION
  Report Type: Spontaneous
  Country: US (occurrence: US)
  Receive Date: 20211020
  Receipt Date: 20211020
  Transmission Date: 20220303
  Serious: No
  Sender: FDA-Public Use
  Company Number: None

PATIENT
  Sex: Female

DRUGS (2)
  1. BIAXIN [Suspect]
     Active Substance: CLARITHROMYCIN
  2. TETRACYCLINE [Suspect]
     Active Substance: TETRACYCLINE

REACTIONS (2)
  - Drug ineffective [None]
  - Drug resistance [None]
